FAERS Safety Report 18692962 (Version 4)
Quarter: 2021Q3

REPORT INFORMATION
  Report Type: Spontaneous
  Country: US (occurrence: US)
  Receive Date: 20210104
  Receipt Date: 20210702
  Transmission Date: 20211014
  Serious: No
  Sender: FDA-Public Use
  Company Number: US-GLAXOSMITHKLINE-US2020AMR259296

PATIENT
  Sex: Female

DRUGS (3)
  1. ZEJULA [Suspect]
     Active Substance: NIRAPARIB
     Indication: OVARIAN CANCER
     Dosage: 200 MG, QD
     Dates: start: 20201211
  2. ZEJULA [Suspect]
     Active Substance: NIRAPARIB
     Dosage: 200 MG, QD
     Dates: start: 20201222
  3. TUMS [Suspect]
     Active Substance: CALCIUM CARBONATE
     Indication: DYSPEPSIA
     Dosage: UNK

REACTIONS (14)
  - Dyspepsia [Not Recovered/Not Resolved]
  - Dysphagia [Unknown]
  - Product dose omission issue [Unknown]
  - Dysgeusia [Unknown]
  - Dizziness [Unknown]
  - Arthralgia [Recovered/Resolved]
  - Feeding disorder [Not Recovered/Not Resolved]
  - Illness [Unknown]
  - Back pain [Recovered/Resolved]
  - Drug ineffective [Unknown]
  - Asthenia [Unknown]
  - Constipation [Unknown]
  - Feeling abnormal [Unknown]
  - Nausea [Unknown]
